FAERS Safety Report 15679478 (Version 1)
Quarter: 2018Q4

REPORT INFORMATION
  Report Type: Spontaneous
  Country: JP (occurrence: JP)
  Receive Date: 20181203
  Receipt Date: 20181203
  Transmission Date: 20190205
  Serious: Yes (Death, Other)
  Sender: FDA-Public Use
  Company Number: JP-ASTELLAS-2018US051320

PATIENT
  Age: 79 Year
  Sex: Female

DRUGS (1)
  1. AMPHOTERICIN B, LIPOSOME [Suspect]
     Active Substance: AMPHOTERICIN B
     Indication: BRONCHOPULMONARY ASPERGILLOSIS
     Route: 042

REACTIONS (4)
  - Generalised oedema [Unknown]
  - Gastrointestinal disorder [Unknown]
  - Hypokalaemia [Unknown]
  - Septic shock [Fatal]

NARRATIVE: CASE EVENT DATE: 201811
